FAERS Safety Report 7745593-1 (Version None)
Quarter: 2011Q3

REPORT INFORMATION
  Report Type: 
  Country: None (occurrence: None)
  Receive Date: 20110913
  Receipt Date: 20110815
  Transmission Date: 20111222
  Serious: No
  Sender: FDA-Public Use
  Company Number: US-BAYER-2011-074367

PATIENT
  Sex: Female

DRUGS (3)
  1. ALEVE (CAPLET) [Suspect]
     Indication: PAIN
     Dosage: UNK
     Route: 048
     Dates: start: 20100101
  2. THYROID TAB [Concomitant]
  3. BLOOD PRESSURE MEDICATION (NOS) [Concomitant]

REACTIONS (1)
  - NO ADVERSE EVENT [None]
